FAERS Safety Report 21094910 (Version 2)
Quarter: 2022Q3

REPORT INFORMATION
  Report Type: Spontaneous
  Country: US (occurrence: US)
  Receive Date: 20220718
  Receipt Date: 20220729
  Transmission Date: 20221026
  Serious: No
  Sender: FDA-Public Use
  Company Number: US-AMGEN-USASP2022118210

PATIENT
  Sex: Male

DRUGS (2)
  1. MVASI [Suspect]
     Active Substance: BEVACIZUMAB-AWWB
     Indication: Colon cancer
     Dosage: 400 MILLIGRAM
     Route: 042
     Dates: start: 202201
  2. MVASI [Suspect]
     Active Substance: BEVACIZUMAB-AWWB
     Dosage: 350 MILLIGRAM, Q3WK
     Route: 042
     Dates: start: 202201

REACTIONS (1)
  - Specialist consultation [Unknown]
